FAERS Safety Report 4303147-3 (Version None)
Quarter: 2004Q1

REPORT INFORMATION
  Report Type: 
  Country: None (occurrence: None)
  Receive Date: 20040126
  Receipt Date: 20030925
  Transmission Date: 20041129
  Serious: No
  Sender: FDA-Public Use
  Company Number: USA030948294

PATIENT
  Age: 7 Year
  Sex: Male
  Weight: 43 kg

DRUGS (1)
  1. STRATTERA [Suspect]
     Indication: ATTENTION DEFICIT/HYPERACTIVITY DISORDER
     Dosage: 40 MG/IN THE MORNING
     Dates: start: 20030921

REACTIONS (3)
  - ABDOMINAL PAIN UPPER [None]
  - TONGUE ULCERATION [None]
  - VOMITING [None]
